FAERS Safety Report 16860296 (Version 1)
Quarter: 2019Q3

REPORT INFORMATION
  Report Type: Spontaneous
  Country: AU (occurrence: AU)
  Receive Date: 20190927
  Receipt Date: 20190927
  Transmission Date: 20191005
  Serious: Yes (Death, Life-Threatening, Hospitalization, Other)
  Sender: FDA-Public Use
  Company Number: AU-PFIZER INC-2019415390

PATIENT
  Age: 43 Year
  Sex: Female

DRUGS (20)
  1. SPIRONOLACTONE. [Concomitant]
     Active Substance: SPIRONOLACTONE
     Dosage: 50 MILLIGRAM, DAILY
     Route: 065
     Dates: end: 20190731
  2. VOLTARENE (DICLOFENAC SODIUM) [Concomitant]
     Active Substance: DICLOFENAC SODIUM
     Dosage: UNK
     Route: 065
  3. ELIQUIS [Suspect]
     Active Substance: APIXABAN
     Dosage: 10 MILLIGRAM, DAILY
     Route: 048
     Dates: end: 20190801
  4. OPSUMIT [Suspect]
     Active Substance: MACITENTAN
     Indication: PULMONARY ARTERIAL HYPERTENSION
     Dosage: 10 MILLIGRAM, QD
     Route: 048
     Dates: start: 20190125, end: 20190801
  5. ILOPROST. [Suspect]
     Active Substance: ILOPROST
     Indication: PULMONARY ARTERIAL HYPERTENSION
     Dosage: 5 MICROGRAM, Q4H
     Dates: start: 20120124, end: 20190801
  6. AMIODARONE [AMIODARONE HYDROCHLORIDE] [Concomitant]
     Active Substance: AMIODARONE HYDROCHLORIDE
     Dosage: 200 MILLIGRAM, DAILY
     Route: 065
     Dates: end: 20190731
  7. OMEPRAZOLE. [Concomitant]
     Active Substance: OMEPRAZOLE
     Dosage: 40 MILLIGRAM, DAILY
     Route: 065
     Dates: end: 20190731
  8. SERETIDE [Concomitant]
     Active Substance: FLUTICASONE PROPIONATE\SALMETEROL XINAFOATE
     Dosage: UNK
     Dates: end: 20190731
  9. FEFOL [FERROUS SULFATE EXSICCATED;FOLIC ACID] [Concomitant]
     Dosage: 1 DOSAGE FORM, DAILY
     Route: 065
     Dates: end: 20190731
  10. PARACETAMOL [Concomitant]
     Active Substance: ACETAMINOPHEN
     Dosage: 2 DOSAGE FORM
     Route: 065
  11. TEMAZEPAM. [Concomitant]
     Active Substance: TEMAZEPAM
     Dosage: 50 MILLIGRAM, DAILY
     Route: 065
     Dates: end: 20190731
  12. ALLOPURINOL. [Concomitant]
     Active Substance: ALLOPURINOL
     Dosage: 200 MILLIGRAM, DAILY
     Route: 065
     Dates: end: 20190731
  13. VISCOTEARS [Concomitant]
     Active Substance: CARBOMER
     Dosage: UNK
     Route: 065
     Dates: end: 20190731
  14. SILDENAFIL CITRATE. [Suspect]
     Active Substance: SILDENAFIL CITRATE
     Indication: PULMONARY ARTERIAL HYPERTENSION
     Dosage: 150 MILLIGRAM
     Route: 065
     Dates: start: 20091008, end: 20190801
  15. AMOXICILLIN. [Concomitant]
     Active Substance: AMOXICILLIN
     Indication: SINUSITIS
     Dosage: 500 MILLIGRAM
     Route: 065
     Dates: end: 20190731
  16. FUROSEMIDE. [Concomitant]
     Active Substance: FUROSEMIDE
     Dosage: 120 MILLIGRAM, DAILY
     Route: 065
     Dates: end: 20190731
  17. SALBUTAMOL SULFATE [Concomitant]
     Active Substance: ALBUTEROL SULFATE
     Dosage: UNK
     Dates: end: 20190731
  18. SERETIDE [Concomitant]
     Active Substance: FLUTICASONE PROPIONATE\SALMETEROL XINAFOATE
     Dosage: 50 MG, DAILY
     Dates: end: 20190731
  19. ACETAMINOPHEN + COD. PHOSP. [Concomitant]
     Active Substance: ACETAMINOPHEN\CODEINE PHOSPHATE
     Dosage: 2 DOSAGE FORM
     Route: 065
     Dates: end: 20190731
  20. METHOBLASTIN [METHOTREXATE SODIUM] [Concomitant]
     Dosage: 10 MILLIGRAM, DAILY
     Route: 065
     Dates: end: 20190731

REACTIONS (13)
  - Multiple organ dysfunction syndrome [Fatal]
  - Rheumatoid arthritis [Unknown]
  - Lower respiratory tract infection [Unknown]
  - Hepatic function abnormal [Unknown]
  - Seizure [Fatal]
  - Atrial flutter [Unknown]
  - Subdural haematoma [Fatal]
  - Cardiac dysfunction [Unknown]
  - Coma scale abnormal [Fatal]
  - Meningoencephalitis viral [Unknown]
  - Somnolence [Unknown]
  - Peptic ulcer [Unknown]
  - Hyponatraemia [Unknown]

NARRATIVE: CASE EVENT DATE: 20190101
